FAERS Safety Report 4945858-2 (Version None)
Quarter: 2006Q1

REPORT INFORMATION
  Report Type: 
  Country: None (occurrence: None)
  Receive Date: 20060117
  Receipt Date: 20050812
  Transmission Date: 20060701
  Serious: Yes (Hospitalization)
  Sender: FDA-Public Use
  Company Number: A03200502499

PATIENT
  Age: 71 Year
  Sex: Male
  Weight: 113.38 kg

DRUGS (17)
  1. PLAVIX [Suspect]
     Indication: ANGIOPLASTY
     Dosage: 75 MG QD - ORAL
     Route: 048
     Dates: start: 20050810
  2. PLAVIX [Suspect]
     Indication: STENT PLACEMENT
     Dosage: 75 MG QD - ORAL
     Route: 048
     Dates: start: 20050810
  3. METFORMIN [Concomitant]
  4. ACETYLSALICYLIC ACID SRT [Concomitant]
  5. ACARBOSE [Concomitant]
  6. GLIPIZIDE [Concomitant]
  7. DILTIAZEM [Concomitant]
  8. PIROXICAM [Concomitant]
  9. ROSIGLITAZONE [Concomitant]
  10. ONE-A-DAY [Concomitant]
  11. CHROMIUM PICOLINATE [Concomitant]
  12. FOLIC ACID [Concomitant]
  13. SIMVASTATIN [Concomitant]
  14. RANITIDINE [Concomitant]
  15. METOPROLOL SUCCINATE [Concomitant]
  16. LISINOPRIL [Concomitant]
  17. MEDICATION FOR LEG CRAMPS [Concomitant]

REACTIONS (1)
  - CEREBROVASCULAR ACCIDENT [None]
